FAERS Safety Report 16697586 (Version 1)
Quarter: 2019Q4

REPORT INFORMATION
  Report Type: Spontaneous
  Country: US (occurrence: US)
  Receive Date: 20190812
  Receipt Date: 20190812
  Transmission Date: 20200122
  Serious: Yes (Hospitalization)
  Sender: FDA-Public Use
  Company Number: None

PATIENT
  Age: 51 Year
  Sex: Male
  Weight: 108 kg

DRUGS (3)
  1. BRAFTOVI [Suspect]
     Active Substance: ENCORAFENIB
     Indication: MALIGNANT MELANOMA
     Route: 048
     Dates: start: 20190618, end: 20190729
  2. LISINOPRIL. [Concomitant]
     Active Substance: LISINOPRIL
  3. MEKTOVI [Suspect]
     Active Substance: BINIMETINIB
     Route: 048

REACTIONS (2)
  - Facial paralysis [None]
  - Pyrexia [None]

NARRATIVE: CASE EVENT DATE: 20190729
